FAERS Safety Report 19001775 (Version 1)
Quarter: 2021Q1

REPORT INFORMATION
  Report Type: Spontaneous
  Country: US (occurrence: US)
  Receive Date: 20210312
  Receipt Date: 20210312
  Transmission Date: 20210420
  Serious: No
  Sender: FDA-Public Use
  Company Number: US-GLAXOSMITHKLINE-US2021056817

PATIENT
  Age: 63 Year
  Sex: Female

DRUGS (1)
  1. FLONASE SENSIMIST ALLERGY RELIEF [Suspect]
     Active Substance: FLUTICASONE FUROATE
     Indication: HYPERSENSITIVITY
     Dosage: UNK

REACTIONS (15)
  - Adverse reaction [Unknown]
  - Emotional distress [Unknown]
  - Illness [Unknown]
  - Hypersensitivity [Unknown]
  - Rebound effect [Unknown]
  - Fatigue [Unknown]
  - Eye disorder [Unknown]
  - Treatment noncompliance [Unknown]
  - Off label use [Unknown]
  - Malaise [Unknown]
  - Nausea [Unknown]
  - Feeling abnormal [Unknown]
  - Drug intolerance [Unknown]
  - Influenza like illness [Unknown]
  - Mental disorder [Unknown]
